FAERS Safety Report 25900309 (Version 2)
Quarter: 2025Q4

REPORT INFORMATION
  Report Type: Spontaneous
  Country: US (occurrence: US)
  Receive Date: 20251009
  Receipt Date: 20251031
  Transmission Date: 20260117
  Serious: Yes (Death, Hospitalization)
  Sender: TEVA
  Company Number: US-TEVA-VS-3377989

PATIENT
  Age: 50 Year
  Sex: Male

DRUGS (9)
  1. AMLODIPINE [Interacting]
     Active Substance: AMLODIPINE BESYLATE
     Indication: Hypertension
     Route: 065
  2. AZITHROMYCIN [Concomitant]
     Active Substance: AZITHROMYCIN
     Indication: Antibiotic therapy
     Route: 065
  3. METFORMIN [Interacting]
     Active Substance: METFORMIN HYDROCHLORIDE
     Indication: Type 2 diabetes mellitus
     Route: 065
  4. HYDROCHLOROTHIAZIDE [Interacting]
     Active Substance: HYDROCHLOROTHIAZIDE
     Indication: Chronic kidney disease
     Route: 065
  5. ALLOPURINOL [Interacting]
     Active Substance: ALLOPURINOL
     Indication: Gout
     Route: 065
  6. BUPROPION [Interacting]
     Active Substance: BUPROPION
     Indication: Depression
     Dosage: BUPROPION HCL
     Route: 065
  7. COLCHICINE [Interacting]
     Active Substance: COLCHICINE
     Indication: Gout
     Route: 065
  8. ALBUTEROL [Concomitant]
     Active Substance: ALBUTEROL
     Indication: Asthma
     Dosage: ALBUTEROL AS-NEEDED
     Route: 065
  9. METOPROLOL [Interacting]
     Active Substance: METOPROLOL
     Indication: Hypertension
     Dosage: METOPROLOL SUCCINATE
     Route: 065

REACTIONS (5)
  - Drug-induced liver injury [Fatal]
  - Acute hepatic failure [Fatal]
  - Multiple organ dysfunction syndrome [Fatal]
  - Metabolic acidosis [Fatal]
  - Drug interaction [Fatal]
